FAERS Safety Report 5871317-9 (Version None)
Quarter: 2008Q3

REPORT INFORMATION
  Report Type: 
  Country: None (occurrence: None)
  Receive Date: 20080905
  Receipt Date: 20080903
  Transmission Date: 20090109
  Serious: Yes (Other)
  Sender: FDA-Public Use
  Company Number: JP-BRISTOL-MYERS SQUIBB COMPANY-14081129

PATIENT
  Age: 55 Year
  Sex: Male
  Weight: 66 kg

DRUGS (13)
  1. BRIPLATIN [Suspect]
     Indication: PLEURAL MESOTHELIOMA MALIGNANT
     Dosage: ALSO 28NOV07 56.25MG/M2 1/1MONTH
     Route: 041
     Dates: start: 20071017, end: 20071107
  2. ALIMTA [Suspect]
     Indication: PLEURAL MESOTHELIOMA MALIGNANT
     Dosage: ALSO 28NOV07 375 MG/M2 1/1MONTH
     Route: 041
     Dates: start: 20071017, end: 20071107
  3. PANVITAN [Concomitant]
     Dosage: FORMULATION = TABLET
     Route: 048
     Dates: start: 20071011, end: 20071224
  4. FRESMIN-S [Concomitant]
     Dosage: FORMULATION = TABLET
     Route: 030
     Dates: start: 20071011, end: 20071011
  5. ASTOMIN [Concomitant]
     Dosage: FORMULATION = TABLET
     Route: 048
     Dates: start: 20071007, end: 20071029
  6. MUCODYNE [Concomitant]
     Dosage: FORMULATION = TABLET
     Route: 048
     Dates: start: 20071007, end: 20071029
  7. PURSENNID [Concomitant]
     Dosage: FORMULATION = TABLET
     Route: 048
     Dates: start: 20071003, end: 20071126
  8. PREDNISOLONE [Concomitant]
     Dosage: FORMULATION = TABLET
     Route: 048
     Dates: start: 20071011, end: 20080104
  9. FERROMIA [Concomitant]
     Dosage: FORMULATION = TABLET
     Route: 048
     Dates: start: 20071016, end: 20080104
  10. CODEINE PHOSPHATE [Concomitant]
     Dosage: POWDER FORM
     Route: 048
     Dates: start: 20071013, end: 20071115
  11. MAGMITT [Concomitant]
     Dosage: FORMULATION = TABLET
     Route: 048
     Dates: start: 20071015, end: 20080104
  12. PROTECADIN [Concomitant]
     Dosage: FORMULATION = TABLET
     Route: 048
     Dates: start: 20071024, end: 20080104
  13. OXYCONTIN [Concomitant]
     Dosage: 08NOV07-14NOV, 15NOV-26NOV, 27NOV-11DEC, 12DEC-13DEC, 14DEC-19DEC, 20DEC, 21DEC-23DEC, 24DEC-UNK
     Route: 048
     Dates: start: 20071108

REACTIONS (4)
  - ANAEMIA [None]
  - ANOREXIA [None]
  - BLOOD UREA INCREASED [None]
  - MALAISE [None]
